FAERS Safety Report 7591770-2 (Version None)
Quarter: 2011Q3

REPORT INFORMATION
  Report Type: 
  Country: None (occurrence: None)
  Receive Date: 20110706
  Receipt Date: 20110624
  Transmission Date: 20111222
  Serious: Yes (Life-Threatening, Hospitalization, Other)
  Sender: FDA-Public Use
  Company Number: US-BAYER-2011-004756

PATIENT
  Age: 49 Year
  Sex: Female
  Weight: 57 kg

DRUGS (12)
  1. ADVIL LIQUI-GELS [Concomitant]
     Dosage: UNK
     Dates: start: 20090101, end: 20100101
  2. ZOLOFT [Concomitant]
     Indication: DEPRESSION
     Dosage: UNK
     Dates: start: 20090901
  3. FAMOTIDINE [Concomitant]
     Dosage: 20 MG, UNK
     Dates: start: 20091207
  4. HYDROCODONE BITARTRATE AND ACETAMINOPHEN [Concomitant]
     Indication: PROCEDURAL PAIN
     Dosage: 5/500MG
     Dates: end: 20091214
  5. VALTREX [Concomitant]
     Dosage: UNK
     Dates: start: 20090925
  6. ZITHROMAX [Concomitant]
     Dosage: UNK
     Dates: start: 20030101, end: 20090101
  7. ZOLPIDEM [Concomitant]
     Dosage: UNK
     Dates: start: 20090601
  8. TRAMADOL HCL [Concomitant]
     Indication: PAIN
     Dosage: 37.5/325
  9. AZITHROMYCIN [Concomitant]
     Dosage: UNK
     Dates: start: 20091118
  10. METOCLOPRO-MIDE [Concomitant]
     Dosage: 10 MG, UNK
     Dates: start: 20091207
  11. YAZ [Suspect]
     Indication: PRODUCT USED FOR UNKNOWN INDICATION
     Dosage: UNK
     Dates: start: 20060101
  12. FEMARA [Concomitant]
     Indication: BREAST CANCER
     Dosage: UNK
     Dates: start: 20090301, end: 20090601

REACTIONS (5)
  - DEEP VEIN THROMBOSIS [None]
  - GENERAL PHYSICAL HEALTH DETERIORATION [None]
  - PULMONARY EMBOLISM [None]
  - PAIN [None]
  - EMOTIONAL DISTRESS [None]
